FAERS Safety Report 6855983-7 (Version None)
Quarter: 2010Q3

REPORT INFORMATION
  Report Type: 
  Country: None (occurrence: None)
  Receive Date: 20100716
  Receipt Date: 20100716
  Transmission Date: 20110219
  Serious: Yes (Disabling)
  Sender: FDA-Public Use
  Company Number: None

PATIENT
  Sex: Female
  Weight: 96.1626 kg

DRUGS (1)
  1. CIPROFLOXACIN HCL [Suspect]
     Indication: EAR OPERATION
     Dosage: 500 MG 2 X DAILY
     Dates: start: 20100609

REACTIONS (9)
  - CHEST PAIN [None]
  - DISTURBANCE IN ATTENTION [None]
  - DIZZINESS [None]
  - JOINT SWELLING [None]
  - NERVOUSNESS [None]
  - OEDEMA PERIPHERAL [None]
  - RESPIRATORY RATE INCREASED [None]
  - TINNITUS [None]
  - VISUAL IMPAIRMENT [None]
